FAERS Safety Report 9363432 (Version 4)
Quarter: 2014Q2

REPORT INFORMATION
  Report Type: Report from Study
  Country: US (occurrence: US)
  Receive Date: 20130624
  Receipt Date: 20140502
  Transmission Date: 20141212
  Serious: Yes (Other)
  Sender: FDA-Public Use
  Company Number: US-SANOFI-AVENTIS-2013SA061560

PATIENT
  Age: 66 Year
  Sex: Female

DRUGS (2)
  1. LANTUS [Suspect]
     Indication: PRODUCT USED FOR UNKNOWN INDICATION
     Dosage: 13-18 UNITS
     Route: 058
     Dates: start: 200503
  2. HUMALIN [Concomitant]

REACTIONS (12)
  - Road traffic accident [Unknown]
  - Post-traumatic neck syndrome [Unknown]
  - Neuropathy peripheral [Unknown]
  - Obsessive-compulsive disorder [Unknown]
  - Anxiety [Unknown]
  - Depression [Unknown]
  - Renal impairment [Unknown]
  - Corneal disorder [Unknown]
  - Hypoglycaemia [Unknown]
  - Diabetic hyperglycaemic coma [Unknown]
  - Blood glucose increased [Unknown]
  - Headache [Unknown]
